FAERS Safety Report 14255423 (Version 2)
Quarter: 2018Q1

REPORT INFORMATION
  Report Type: Spontaneous
  Country: DE (occurrence: DE)
  Receive Date: 20171206
  Receipt Date: 20180116
  Transmission Date: 20180508
  Serious: Yes (Other)
  Sender: FDA-Public Use
  Company Number: DE-BEH-2017085726

PATIENT

DRUGS (5)
  1. ALBUMIN HUMAN (INN) [Suspect]
     Active Substance: ALBUMIN HUMAN
     Indication: PRODUCT USED FOR UNKNOWN INDICATION
     Dosage: UNK
     Route: 065
  2. PROTHROMPLEX (FACTORS II, VII, IX, X, PROTEIN C) [Suspect]
     Active Substance: COAGULATION FACTOR IX HUMAN\COAGULATION FACTOR VII HUMAN\COAGULATION FACTOR X HUMAN\PROTEIN C\PROTHROMBIN
     Indication: PRODUCT USED FOR UNKNOWN INDICATION
     Dosage: 2400 IU, UNK
     Route: 065
     Dates: start: 20171106, end: 20171106
  3. AT III (ANTITHROMBIN III) [Suspect]
     Active Substance: ANTITHROMBIN III HUMAN
     Indication: PRODUCT USED FOR UNKNOWN INDICATION
     Dosage: 500 IU, UNK
     Route: 065
     Dates: start: 20171108, end: 20171108
  4. PROTHROMPLEX (FACTORS II, VII, IX, X, PROTEIN C) [Suspect]
     Active Substance: COAGULATION FACTOR IX HUMAN\COAGULATION FACTOR VII HUMAN\COAGULATION FACTOR X HUMAN\PROTEIN C\PROTHROMBIN
     Dosage: 5400 IU, UNK
     Route: 065
     Dates: start: 20171107, end: 20171107
  5. PROTHROMPLEX (FACTORS II, VII, IX, X, PROTEIN C) [Suspect]
     Active Substance: COAGULATION FACTOR IX HUMAN\COAGULATION FACTOR VII HUMAN\COAGULATION FACTOR X HUMAN\PROTEIN C\PROTHROMBIN
     Dosage: 600 UNK, UNK
     Route: 065
     Dates: start: 20171108, end: 20171108

REACTIONS (3)
  - Shock haemorrhagic [Unknown]
  - HIV infection [Unknown]
  - Coagulopathy [Unknown]
